FAERS Safety Report 5852099-3 (Version None)
Quarter: 2008Q3

REPORT INFORMATION
  Report Type: 
  Country: None (occurrence: None)
  Receive Date: 20080819
  Receipt Date: 20080819
  Transmission Date: 20090109
  Serious: Yes (Hospitalization)
  Sender: FDA-Public Use
  Company Number: None

PATIENT
  Age: 68 Year
  Sex: Male
  Weight: 96 kg

DRUGS (9)
  1. WARFARIN SODIUM [Suspect]
     Indication: ATRIAL FIBRILLATION
     Dosage: 5 MG DAILY PO CHRONIC
     Route: 048
  2. MUCINEX [Concomitant]
  3. PRAVASTATIN [Concomitant]
  4. METFORMIN [Concomitant]
  5. ACTOS [Concomitant]
  6. DILTIAZEM HCL [Concomitant]
  7. INSULIN [Concomitant]
  8. PILOCARPINE HCL [Concomitant]
  9. COSOPT [Concomitant]

REACTIONS (4)
  - ANAEMIA [None]
  - HAEMATOMA [None]
  - INTERNATIONAL NORMALISED RATIO INCREASED [None]
  - UPPER GASTROINTESTINAL HAEMORRHAGE [None]
